FAERS Safety Report 8163615-3 (Version None)
Quarter: 2012Q1

REPORT INFORMATION
  Report Type: 
  Country: None (occurrence: None)
  Receive Date: 20120224
  Receipt Date: 20120221
  Transmission Date: 20120608
  Serious: Yes (Other)
  Sender: FDA-Public Use
  Company Number: US-PFIZER INC-2012020667

PATIENT
  Sex: Male
  Weight: 100 kg

DRUGS (6)
  1. LIPITOR [Suspect]
     Indication: BLOOD CHOLESTEROL INCREASED
     Dosage: 20 MG, DAILY
     Dates: start: 19970101, end: 20110701
  2. LISINOPRIL [Concomitant]
     Indication: CARDIAC DISORDER
     Dosage: 10 MG, DAILY
  3. ASPIRIN [Concomitant]
     Dosage: TWO 81MG TABLETS DAILY
     Route: 048
  4. POTASSIUM CITRATE [Concomitant]
     Indication: BLOOD URIC ACID ABNORMAL
     Dosage: 1080 MG, DAILY
  5. ALLOPURINOL [Concomitant]
     Indication: PROPHYLAXIS
     Dosage: 100 MG, 2X/DAY
  6. METOPROLOL TARTRATE [Concomitant]
     Indication: BLOOD PRESSURE ABNORMAL
     Dosage: 75 MG, 2X/DAY

REACTIONS (3)
  - CORONARY ARTERY OCCLUSION [None]
  - BLOOD CHOLESTEROL ABNORMAL [None]
  - DEVICE OCCLUSION [None]
